FAERS Safety Report 11967141 (Version 5)
Quarter: 2017Q4

REPORT INFORMATION
  Report Type: Spontaneous
  Country: US (occurrence: US)
  Receive Date: 20160127
  Receipt Date: 20171009
  Transmission Date: 20180320
  Serious: No
  Sender: FDA-Public Use
  Company Number: US-PFIZER INC-2016036604

PATIENT
  Age: 62 Year
  Sex: Male

DRUGS (2)
  1. SUTENT [Suspect]
     Active Substance: SUNITINIB MALATE
     Indication: RENAL CANCER
     Dosage: 37.5 MG, UNK
     Dates: start: 20160115
  2. SUTENT [Suspect]
     Active Substance: SUNITINIB MALATE
     Dosage: 50 MG, DAILY CYCLIC (28 DAYS ON/14 DAYS OFF)
     Dates: start: 20160120

REACTIONS (6)
  - Malaise [Recovered/Resolved]
  - Neoplasm malignant [Not Recovered/Not Resolved]
  - Anxiety [Recovered/Resolved]
  - Disease progression [Not Recovered/Not Resolved]
  - Drug dose omission [Not Recovered/Not Resolved]
  - Insomnia [Not Recovered/Not Resolved]

NARRATIVE: CASE EVENT DATE: 201601
